FAERS Safety Report 16955585 (Version 13)
Quarter: 2022Q4

REPORT INFORMATION
  Report Type: Spontaneous
  Country: US (occurrence: US)
  Receive Date: 20191024
  Receipt Date: 20221205
  Transmission Date: 20230113
  Serious: Yes (Other)
  Sender: FDA-Public Use
  Company Number: US-PFIZER INC-2019457463

PATIENT
  Age: 89 Year
  Sex: Female
  Weight: 54.422 kg

DRUGS (6)
  1. XELJANZ XR [Suspect]
     Active Substance: TOFACITINIB CITRATE
     Indication: Rheumatoid arthritis
     Dosage: 11 MG, 1X/DAY
     Route: 048
  2. XELJANZ XR [Suspect]
     Active Substance: TOFACITINIB CITRATE
     Indication: Osteoarthritis
     Dosage: 11 MG, 1X/DAY
     Route: 048
     Dates: start: 2016
  3. XELJANZ XR [Suspect]
     Active Substance: TOFACITINIB CITRATE
     Dosage: 1 DF, ALTERNATE DAY (EVERY OTHER DAY)
     Route: 048
     Dates: end: 20220415
  4. CHOLECALCIFEROL [Concomitant]
     Active Substance: CHOLECALCIFEROL
     Dosage: UNK, 1X/DAY
  5. ASPIRIN [Concomitant]
     Active Substance: ASPIRIN
     Dosage: 81 MG, 1X/DAY
  6. AMLODIPINE [Concomitant]
     Active Substance: AMLODIPINE BESYLATE
     Dosage: UNK, 1X/DAY

REACTIONS (22)
  - Oral neoplasm [Unknown]
  - Pleomorphic adenoma [Unknown]
  - Road traffic accident [Unknown]
  - Product dose omission issue [Unknown]
  - Intentional product misuse [Unknown]
  - Finger deformity [Unknown]
  - Hand deformity [Unknown]
  - Hypoacusis [Unknown]
  - Pain [Unknown]
  - Arthralgia [Recovering/Resolving]
  - Pollakiuria [Recovered/Resolved]
  - Body height decreased [Unknown]
  - Weight decreased [Unknown]
  - Peripheral swelling [Unknown]
  - Hand deformity [Not Recovered/Not Resolved]
  - Therapeutic product effect incomplete [Unknown]
  - Memory impairment [Unknown]
  - Pain in extremity [Unknown]
  - Pain in extremity [Unknown]
  - Neck pain [Unknown]
  - Back pain [Unknown]
  - Off label use [Unknown]

NARRATIVE: CASE EVENT DATE: 20180101
